FAERS Safety Report 6917758-X (Version None)
Quarter: 2010Q3

REPORT INFORMATION
  Report Type: 
  Country: None (occurrence: None)
  Receive Date: 20100810
  Receipt Date: 20100728
  Transmission Date: 20110219
  Serious: Yes (Other)
  Sender: FDA-Public Use
  Company Number: US-PFIZER INC-2009263529

PATIENT
  Sex: Male
  Weight: 83.9 kg

DRUGS (7)
  1. BEXTRA [Suspect]
     Indication: PAIN
     Dosage: UNK
     Route: 048
     Dates: start: 20040416
  2. BEXTRA [Suspect]
     Indication: INFLAMMATION
  3. BEXTRA [Suspect]
     Indication: ARTHRITIS
  4. LORTAB [Concomitant]
     Indication: PAIN
     Dosage: UNK
     Dates: start: 20040416
  5. LORTAB [Concomitant]
     Indication: INFLAMMATION
  6. LORTAB [Concomitant]
     Indication: ARTHRITIS
  7. CODEINE [Concomitant]
     Dosage: UNK

REACTIONS (14)
  - ARTHROPOD BITE [None]
  - CELLULITIS [None]
  - DYSPNOEA [None]
  - HERPES ZOSTER [None]
  - HYPERSENSITIVITY [None]
  - JOINT INJURY [None]
  - NECROTISING COLITIS [None]
  - NIGHT BLINDNESS [None]
  - PHOTOPHOBIA [None]
  - ROAD TRAFFIC ACCIDENT [None]
  - SCRATCH [None]
  - SEPTIC ARTHRITIS STAPHYLOCOCCAL [None]
  - STEVENS-JOHNSON SYNDROME [None]
  - TOXIC EPIDERMAL NECROLYSIS [None]
